FAERS Safety Report 15863441 (Version 1)
Quarter: 2019Q1

REPORT INFORMATION
  Report Type: Report from Study
  Country: GB (occurrence: GB)
  Receive Date: 20190124
  Receipt Date: 20190124
  Transmission Date: 20190417
  Serious: Yes (Other)
  Sender: FDA-Public Use
  Company Number: PHHY2018GB164180

PATIENT
  Sex: Male

DRUGS (2)
  1. TOBI PODHALER [Suspect]
     Active Substance: TOBRAMYCIN
     Indication: CYSTIC FIBROSIS
     Dosage: 28 MG, BID
     Route: 055
     Dates: start: 20150206
  2. TOBI PODHALER [Suspect]
     Active Substance: TOBRAMYCIN
     Dosage: 28 MG, BID
     Route: 048
     Dates: start: 20171102

REACTIONS (1)
  - Pseudomonas infection [Not Recovered/Not Resolved]
